FAERS Safety Report 15288105 (Version 2)
Quarter: 2019Q3

REPORT INFORMATION
  Report Type: Report from Study
  Country: None (occurrence: US)
  Receive Date: 20180817
  Receipt Date: 20190820
  Transmission Date: 20191004
  Serious: Yes (Other)
  Sender: FDA-Public Use
  Company Number: US-ABBVIE-18K-163-2452965-00

PATIENT
  Sex: Male

DRUGS (2)
  1. HUMIRA [Suspect]
     Active Substance: ADALIMUMAB
     Indication: COLITIS ULCERATIVE
     Route: 058
  2. HUMIRA [Suspect]
     Active Substance: ADALIMUMAB
     Indication: CROHN^S DISEASE
     Route: 058
     Dates: end: 20190619

REACTIONS (6)
  - Polyp [Unknown]
  - Therapeutic response shortened [Unknown]
  - Abnormal faeces [Unknown]
  - Flatulence [Unknown]
  - Bone fistula [Recovered/Resolved]
  - Bone fistula [Unknown]

NARRATIVE: CASE EVENT DATE: 2018
